FAERS Safety Report 7301276-3 (Version None)
Quarter: 2011Q1

REPORT INFORMATION
  Report Type: 
  Country: None (occurrence: None)
  Receive Date: 20110218
  Receipt Date: 20101220
  Transmission Date: 20110831
  Serious: Yes (Hospitalization, Other)
  Sender: FDA-Public Use
  Company Number: US-B.I. PHARMACEUTICALS,INC./RIDGEFIELD-2011-BP-00653BP

PATIENT
  Sex: Female

DRUGS (2)
  1. PLAVIX [Concomitant]
     Dates: start: 20090101
  2. PRADAXA [Suspect]

REACTIONS (2)
  - PLEURAL EFFUSION [None]
  - CEREBROVASCULAR ACCIDENT [None]
